FAERS Safety Report 6535111-8 (Version None)
Quarter: 2010Q1

REPORT INFORMATION
  Report Type: 
  Country: None (occurrence: None)
  Receive Date: 20100113
  Receipt Date: 20100104
  Transmission Date: 20100710
  Serious: Yes (Other)
  Sender: FDA-Public Use
  Company Number: US-BIOGENIDEC-2007BI017045

PATIENT
  Age: 29 Year
  Sex: Female

DRUGS (2)
  1. TYSABRI [Suspect]
     Indication: MULTIPLE SCLEROSIS
     Route: 042
     Dates: start: 20070613, end: 20070809
  2. TYSABRI [Suspect]
     Route: 042
     Dates: start: 20050224, end: 20050224

REACTIONS (2)
  - HYPERSENSITIVITY [None]
  - SHOCK [None]
